FAERS Safety Report 24174045 (Version 2)
Quarter: 2025Q3

REPORT INFORMATION
  Report Type: Report from Study
  Country: JP (occurrence: JP)
  Receive Date: 20240805
  Receipt Date: 20250828
  Transmission Date: 20251021
  Serious: Yes (Hospitalization)
  Sender: UCB
  Company Number: JP-UCBJ-CD202401106UCBPHAPROD

PATIENT
  Age: 5 Decade
  Sex: Male

DRUGS (3)
  1. FENFLURAMINE HYDROCHLORIDE [Suspect]
     Active Substance: FENFLURAMINE HYDROCHLORIDE
     Indication: Severe myoclonic epilepsy of infancy
     Route: 048
     Dates: start: 20240115
  2. FENFLURAMINE HYDROCHLORIDE [Suspect]
     Active Substance: FENFLURAMINE HYDROCHLORIDE
     Route: 048
  3. FENFLURAMINE HYDROCHLORIDE [Suspect]
     Active Substance: FENFLURAMINE HYDROCHLORIDE
     Route: 048

REACTIONS (4)
  - Foot fracture [Unknown]
  - Decreased appetite [Recovered/Resolved]
  - Somnolence [Unknown]
  - Incorrect dose administered [Unknown]
